FAERS Safety Report 8837165 (Version 1)
Quarter: 2012Q4

REPORT INFORMATION
  Report Type: 
  Country: ES (occurrence: ES)
  Receive Date: 20121012
  Receipt Date: 20121012
  Transmission Date: 20130627
  Serious: Yes (Hospitalization)
  Sender: FDA-Public Use
  Company Number: ES-TEVA-362688ISR

PATIENT
  Age: 31 Year
  Sex: Male

DRUGS (5)
  1. LEVETIRACETAM [Suspect]
     Indication: GRAND MAL CONVULSION
     Route: 048
  2. DEXAMETHASONE [Concomitant]
     Dosage: (day 1) 12 mg daily
     Route: 065
  3. DEXAMETHASONE [Concomitant]
     Dosage: Tapered to 2 mg/day
     Route: 065
  4. DEXAMETHASONE [Concomitant]
     Dosage: (day 51) 6mg daily
     Route: 065
  5. DEXAMETHASONE [Concomitant]
     Dosage: (day 55) 4 mg daily for 2 additional days
     Route: 065

REACTIONS (1)
  - Drug reaction with eosinophilia and systemic symptoms [Recovered/Resolved]
